FAERS Safety Report 6964555-5 (Version None)
Quarter: 2010Q3

REPORT INFORMATION
  Report Type: 
  Country: None (occurrence: None)
  Receive Date: 20100903
  Receipt Date: 20100802
  Transmission Date: 20110219
  Serious: Yes (Hospitalization)
  Sender: FDA-Public Use
  Company Number: US-BAYER-201011519NA

PATIENT
  Age: 44 Year
  Sex: Female

DRUGS (3)
  1. YASMIN [Suspect]
     Indication: CONTRACEPTION
     Route: 048
     Dates: start: 20050801, end: 20070101
  2. LORTAB [Concomitant]
     Dates: start: 20011024, end: 20070102
  3. FLUOXETINE [Concomitant]
     Indication: DEPRESSION
     Dates: start: 20001019, end: 20070102

REACTIONS (3)
  - CEREBROVASCULAR ACCIDENT [None]
  - DEEP VEIN THROMBOSIS [None]
  - HEMIPLEGIA [None]
